FAERS Safety Report 26094448 (Version 1)
Quarter: 2025Q4

REPORT INFORMATION
  Report Type: Spontaneous
  Country: US (occurrence: US)
  Receive Date: 20251126
  Receipt Date: 20251126
  Transmission Date: 20260118
  Serious: No
  Sender: JAZZ
  Company Number: US-JAZZ PHARMACEUTICALS-2025-US-024392

PATIENT
  Sex: Female

DRUGS (1)
  1. ZANIDATAMAB [Suspect]
     Active Substance: ZANIDATAMAB
     Indication: Product used for unknown indication
     Dosage: 20 MILLIGRAM/KILOGRAM (EVERY TWO WEEKS)

REACTIONS (1)
  - Diarrhoea [Recovered/Resolved]
